FAERS Safety Report 5220530-2 (Version None)
Quarter: 2007Q1

REPORT INFORMATION
  Report Type: 
  Country: None (occurrence: None)
  Receive Date: 20070125
  Receipt Date: 20070125
  Transmission Date: 20070707
  Serious: Yes (Hospitalization)
  Sender: FDA-Public Use
  Company Number: None

PATIENT
  Sex: Female
  Weight: 78.0187 kg

DRUGS (9)
  1. CYTOXAN [Suspect]
     Indication: NEOPLASM MALIGNANT
     Dosage: PRIOR TO ADMISSION (CYCLE #7)
  2. ADRIAMYCIN PFS [Suspect]
     Indication: NEOPLASM MALIGNANT
     Dosage: PRIOR TO ADMISSION (CYCLE #7)
  3. VINCRISTINE [Suspect]
     Indication: NEOPLASM MALIGNANT
     Dosage: PRIOR TO ADMISSION (CYCLE #7)
  4. PREDNISONE [Suspect]
     Indication: NEOPLASM MALIGNANT
     Dosage: PRIOR TO ADMISSION (CYCLE #7)
  5. ATENOLOL [Concomitant]
  6. PROTONIX [Concomitant]
  7. SYNTHROID [Concomitant]
  8. ASPIRIN [Concomitant]
  9. LIPITOR [Concomitant]

REACTIONS (2)
  - NEUTROPENIA [None]
  - PYREXIA [None]
